FAERS Safety Report 9519566 (Version 1)
Quarter: 2013Q3

REPORT INFORMATION
  Report Type: Spontaneous
  Country: DE (occurrence: DE)
  Receive Date: 20130912
  Receipt Date: 20130912
  Transmission Date: 20140515
  Serious: Yes (Other)
  Sender: FDA-Public Use
  Company Number: GXKR2013DE002982

PATIENT
  Sex: 0

DRUGS (5)
  1. LAMOTRIGINE [Suspect]
     Dosage: MATERNAL DOSE: 200 [MG/D ], 0.-38.4 GW
     Route: 064
  2. TREVILOR [Suspect]
     Dosage: MATERNAL DOSE: 225 [MG/D ], 0.-38.4 GW
     Route: 064
  3. PROMETHAZIN NEURAXPHARM [Suspect]
     Dosage: MATERNAL DOSE: 25 [MG/D ] 0.-38.4 GW
     Route: 064
  4. L-THYROXIN [Concomitant]
     Dosage: MATERNAL DOSE: 50 [?G/D ], 0-38.4 GW
     Route: 064
  5. FOLIO FORTE [Concomitant]
     Dosage: MATERNAL DOSE: 0.8 [MG/D ] GW 1.5-12
     Route: 064

REACTIONS (3)
  - Neonatal respiratory distress syndrome [Recovered/Resolved]
  - Drug withdrawal syndrome neonatal [Recovered/Resolved]
  - Bradycardia neonatal [Recovered/Resolved]
